FAERS Safety Report 5208315-4 (Version None)
Quarter: 2007Q1

REPORT INFORMATION
  Report Type: 
  Country: None (occurrence: None)
  Receive Date: 20070110
  Receipt Date: 20070110
  Transmission Date: 20070707
  Serious: Yes (Disabling)
  Sender: FDA-Public Use
  Company Number: None

PATIENT
  Sex: Male

DRUGS (1)
  1. CHEMOPAPAIN  (MANUFACTURER NOT KNOWN) ONE INJECTION [Suspect]
     Indication: INTERVERTEBRAL DISC PROTRUSION
     Dates: end: 19750101

REACTIONS (3)
  - CONDITION AGGRAVATED [None]
  - HYPOAESTHESIA [None]
  - OFF LABEL USE [None]
